FAERS Safety Report 25938932 (Version 2)
Quarter: 2025Q4

REPORT INFORMATION
  Report Type: Report from Study
  Country: BR (occurrence: BR)
  Receive Date: 20251019
  Receipt Date: 20251027
  Transmission Date: 20260118
  Serious: Yes (Hospitalization, Other)
  Sender: JOHNSON AND JOHNSON
  Company Number: BR-BAYER-2025A134691

PATIENT
  Sex: Female

DRUGS (13)
  1. VENTAVIS [Suspect]
     Active Substance: ILOPROST
     Indication: Pulmonary arterial hypertension
     Dosage: 5 INHALATIONS/DAY
     Route: 055
     Dates: start: 2024
  2. BOSENTAN [Concomitant]
     Active Substance: BOSENTAN
     Indication: Pulmonary hypertension
     Dosage: 1 TABLET OF 125 MG/12H
     Dates: start: 2020
  3. TADALAFIL [Concomitant]
     Active Substance: TADALAFIL
     Indication: Pulmonary hypertension
     Dosage: 1 DF, QD
     Dates: start: 2020
  4. SPIRONOLACTONE [Concomitant]
     Active Substance: SPIRONOLACTONE
     Indication: Fluid retention
     Dosage: 1 TABLET/12 HOURS
     Dates: start: 202504
  5. UNSPECIFIED INGREDIENT [Concomitant]
     Active Substance: UNSPECIFIED INGREDIENT
     Indication: Fluid retention
     Dosage: 1 TABLET/DAY
     Dates: start: 202504
  6. FUROSEMIDE [Concomitant]
     Active Substance: FUROSEMIDE
     Indication: Fluid retention
     Dosage: 5 DF, QD
     Dates: start: 2020
  7. PANTOPRAZOLE [Concomitant]
     Active Substance: PANTOPRAZOLE
     Indication: Gastrooesophageal reflux disease
     Dosage: 1 DF, QD
     Dates: start: 2023
  8. DOMPERIDONE [Concomitant]
     Active Substance: DOMPERIDONE
     Indication: Dyspepsia
     Dosage: 3 TIMES A DAY 15 MIN BEFORE MEALS
     Dates: start: 2022
  9. AMIODARONE [Concomitant]
     Active Substance: AMIODARONE
     Indication: Cardiac disorder
     Dosage: 1 DF, QD,200 MG
     Dates: start: 202306
  10. SLOW K [Concomitant]
     Active Substance: POTASSIUM CHLORIDE
     Indication: Hypokalaemia
     Dosage: 1 TABLET/12H
     Dates: start: 202411
  11. CALCIUM CARBONATE\CHOLECALCIFEROL [Concomitant]
     Active Substance: CALCIUM CARBONATE\CHOLECALCIFEROL
     Indication: Vitamin supplementation
     Dosage: 2 TABLET/12H
     Dates: start: 2023
  12. VITAMIN D3 [Concomitant]
     Active Substance: CHOLECALCIFEROL
     Indication: Nutritional supplementation
     Dosage: 2 TABLETS OF 7000 IU EVERY 2 DAYS
     Dates: start: 2024
  13. CYANOCOBALAMIN\PYRIDOXINE HYDROCHLORIDE\THIAMINE [Concomitant]
     Active Substance: CYANOCOBALAMIN\PYRIDOXINE HYDROCHLORIDE\THIAMINE
     Indication: Vitamin supplementation
     Dosage: UNK
     Dates: start: 202509, end: 202509

REACTIONS (32)
  - Peripheral swelling [Unknown]
  - Gait disturbance [Recovering/Resolving]
  - Cardiac dysfunction [Unknown]
  - Epistaxis [Recovering/Resolving]
  - Stomatitis [Recovered/Resolved]
  - Eye irritation [Recovered/Resolved]
  - Contusion [Recovering/Resolving]
  - Drug administered in wrong device [Unknown]
  - Wrong technique in product usage process [Unknown]
  - Neck pain [Unknown]
  - Vitamin B12 increased [Unknown]
  - Dyspnoea [Recovering/Resolving]
  - Fluid retention [Unknown]
  - Rhinalgia [Unknown]
  - Blood potassium decreased [Unknown]
  - Intentional product use issue [Unknown]
  - Inappropriate schedule of product administration [Unknown]
  - Pain in extremity [Not Recovered/Not Resolved]
  - Muscular weakness [Not Recovered/Not Resolved]
  - Dyskinesia [Not Recovered/Not Resolved]
  - Tremor [Not Recovered/Not Resolved]
  - Peripheral swelling [Unknown]
  - Feeling cold [Unknown]
  - Dizziness [Unknown]
  - Gastrointestinal disorder [Unknown]
  - Lung disorder [Unknown]
  - Cardiac disorder [Unknown]
  - Tachycardia [Unknown]
  - Palpitations [Unknown]
  - Fatigue [Unknown]
  - Cough [Unknown]
  - Malaise [Unknown]

NARRATIVE: CASE EVENT DATE: 20240101
